FAERS Safety Report 17815880 (Version 3)
Quarter: 2020Q2

REPORT INFORMATION
  Report Type: Spontaneous
  Country: IE (occurrence: IE)
  Receive Date: 20200522
  Receipt Date: 20200605
  Transmission Date: 20200714
  Serious: Yes (Other)
  Sender: FDA-Public Use
  Company Number: IE-GUERBET-IE-20200006

PATIENT
  Age: 35 Year
  Sex: Female

DRUGS (1)
  1. DOTAREM [Suspect]
     Active Substance: GADOTERATE MEGLUMINE
     Indication: MAGNETIC RESONANCE IMAGING
     Route: 065
     Dates: start: 20180407

REACTIONS (3)
  - Hypoaesthesia [Recovered/Resolved with Sequelae]
  - Peripheral swelling [Recovered/Resolved with Sequelae]
  - Paraesthesia [Recovered/Resolved with Sequelae]

NARRATIVE: CASE EVENT DATE: 20180408
